FAERS Safety Report 16943130 (Version 1)
Quarter: 2019Q4

REPORT INFORMATION
  Report Type: Spontaneous
  Country: KR (occurrence: KR)
  Receive Date: 20191021
  Receipt Date: 20191021
  Transmission Date: 20200122
  Serious: Yes (Other)
  Sender: FDA-Public Use
  Company Number: KR-CELLTRION INC.-2019KR025784

PATIENT

DRUGS (2)
  1. RITUXIMAB (UNKNOWN) [Suspect]
     Active Substance: RITUXIMAB
     Indication: EPSTEIN-BARR VIRAEMIA
     Dosage: SINGLE DOSE OF 375 MG/M2 BODY SURFACE AREA
  2. TACROLIMUS. [Suspect]
     Active Substance: TACROLIMUS
     Indication: IMMUNOSUPPRESSANT DRUG THERAPY
     Dosage: UNK

REACTIONS (6)
  - End stage renal disease [Unknown]
  - Off label use [Unknown]
  - Febrile neutropenia [Unknown]
  - Drug effective for unapproved indication [Unknown]
  - Kidney transplant rejection [Unknown]
  - Product use issue [Unknown]
